FAERS Safety Report 8747425 (Version 2)
Quarter: 2012Q4

REPORT INFORMATION
  Report Type: 
  Country: US (occurrence: US)
  Receive Date: 20120827
  Receipt Date: 20120829
  Transmission Date: 20130627
  Serious: Yes (Hospitalization, Other)
  Sender: FDA-Public Use
  Company Number: US-PFIZER INC-2012206448

PATIENT
  Age: 50 Year
  Sex: Female

DRUGS (6)
  1. AVINZA [Suspect]
     Dosage: 60 mg in the morning, 1x/day
     Route: 065
  2. SKELAXIN [Suspect]
     Dosage: UNK
  3. MS CONTIN [Suspect]
     Dosage: 30 mg, 2x/day
     Route: 065
  4. TRAMADOL HYDROCHLORIDE [Suspect]
     Dosage: 50 mg, every 4 hrs
  5. MORPHINE [Suspect]
     Dosage: 15 mg, every 4 hrs
  6. FLEXERIL [Suspect]
     Dosage: UNK

REACTIONS (3)
  - Ankle fracture [Unknown]
  - Syncope [Unknown]
  - Sedation [Unknown]
